FAERS Safety Report 7055974-X (Version None)
Quarter: 2010Q4

REPORT INFORMATION
  Report Type: 
  Country: None (occurrence: None)
  Receive Date: 20101021
  Receipt Date: 20101018
  Transmission Date: 20110411
  Serious: Yes (Hospitalization)
  Sender: FDA-Public Use
  Company Number: A0885112A

PATIENT
  Sex: Male
  Weight: 61 kg

DRUGS (3)
  1. LAPATINIB [Suspect]
     Indication: HEAD AND NECK CANCER
     Route: 048
  2. CISPLATIN [Suspect]
     Indication: HEAD AND NECK CANCER
     Dosage: 100MGM2 CYCLIC
     Route: 042
     Dates: start: 20100907
  3. RADIOTHERAPY [Suspect]
     Indication: HEAD AND NECK CANCER
     Route: 061

REACTIONS (2)
  - MUCOSAL INFLAMMATION [None]
  - RENAL FAILURE [None]
